FAERS Safety Report 21986248 (Version 2)
Quarter: 2023Q1

REPORT INFORMATION
  Report Type: Report from Study
  Country: CO (occurrence: CO)
  Receive Date: 20230213
  Receipt Date: 20230321
  Transmission Date: 20230418
  Serious: Yes (Hospitalization)
  Sender: FDA-Public Use
  Company Number: CO-ELI_LILLY_AND_COMPANY-CO202212012135

PATIENT
  Age: 63 Year
  Sex: Female

DRUGS (22)
  1. TRULICITY [Suspect]
     Active Substance: DULAGLUTIDE
     Indication: Type 2 diabetes mellitus
     Dosage: 1.5 MG, WEEKLY (1/W)
     Route: 058
     Dates: start: 202203
  2. EMPAGLIFLOZIN [Concomitant]
     Active Substance: EMPAGLIFLOZIN
     Indication: Type 2 diabetes mellitus
  3. LINAGLIPTIN [Concomitant]
     Active Substance: LINAGLIPTIN
     Indication: Type 2 diabetes mellitus
  4. SACUBITRIL [Concomitant]
     Active Substance: SACUBITRIL
     Indication: Hypertension
  5. ROSUVASTATIN [Concomitant]
     Active Substance: ROSUVASTATIN
     Indication: Blood triglycerides abnormal
  6. ROSUVASTATIN [Concomitant]
     Active Substance: ROSUVASTATIN
     Indication: Blood cholesterol abnormal
  7. FUROSEMIDE [Concomitant]
     Active Substance: FUROSEMIDE
     Indication: Chronic kidney disease
  8. SPIRONOLACTONE [Concomitant]
     Active Substance: SPIRONOLACTONE
     Indication: Chronic kidney disease
  9. CHLORPHENIRAMINE MALEATE [Concomitant]
     Active Substance: CHLORPHENIRAMINE MALEATE
     Indication: Chronic sinusitis
  10. CARBAMAZEPINE [Concomitant]
     Active Substance: CARBAMAZEPINE
     Indication: Cerebral ischaemia
  11. OXYGEN [Concomitant]
     Active Substance: OXYGEN
     Indication: Pulmonary oedema
  12. FERROUS SULFATE [Concomitant]
     Active Substance: FERROUS SULFATE
     Indication: Anaemia
  13. COMPLEX B [VITAMIN B COMPLEX] [Concomitant]
     Indication: Anaemia
  14. CARVEDILOL [Concomitant]
     Active Substance: CARVEDILOL
     Indication: Cardiac failure
  15. CARVEDILOL [Concomitant]
     Active Substance: CARVEDILOL
     Indication: Cardiomegaly
  16. CARVEDILOL [Concomitant]
     Active Substance: CARVEDILOL
     Indication: Coronary artery disease
  17. IVABRADINE [Concomitant]
     Active Substance: IVABRADINE
     Indication: Coronary artery disease
  18. IVABRADINE [Concomitant]
     Active Substance: IVABRADINE
     Indication: Cardiac failure
  19. IVABRADINE [Concomitant]
     Active Substance: IVABRADINE
     Indication: Cardiomegaly
  20. ASPIRIN [Concomitant]
     Active Substance: ASPIRIN
     Indication: Cardiomegaly
  21. ASPIRIN [Concomitant]
     Active Substance: ASPIRIN
     Indication: Coronary artery disease
  22. ASPIRIN [Concomitant]
     Active Substance: ASPIRIN
     Indication: Cardiac failure

REACTIONS (13)
  - General physical health deterioration [Not Recovered/Not Resolved]
  - Dehydration [Not Recovered/Not Resolved]
  - Kidney infection [Not Recovered/Not Resolved]
  - Lung disorder [Not Recovered/Not Resolved]
  - Influenza [Recovered/Resolved]
  - Blood glucose increased [Recovering/Resolving]
  - Influenza [Not Recovered/Not Resolved]
  - Weight decreased [Not Recovered/Not Resolved]
  - Oropharyngeal pain [Unknown]
  - Fat tissue increased [Unknown]
  - Ulcer [Unknown]
  - Blood pressure decreased [Unknown]
  - Hypersensitivity [Not Recovered/Not Resolved]

NARRATIVE: CASE EVENT DATE: 20220601
